FAERS Safety Report 8283702-9 (Version None)
Quarter: 2012Q2

REPORT INFORMATION
  Report Type: 
  Country: None (occurrence: None)
  Receive Date: 20120413
  Receipt Date: 20110405
  Transmission Date: 20120825
  Serious: No
  Sender: FDA-Public Use
  Company Number: US-ASTRAZENECA-2011SE19925

PATIENT
  Age: 43 Year
  Sex: Female

DRUGS (2)
  1. ZANTAC [Concomitant]
     Route: 065
  2. NEXIUM [Suspect]
     Route: 048

REACTIONS (5)
  - BURNING SENSATION [None]
  - URTICARIA [None]
  - ECZEMA [None]
  - SCAB [None]
  - RASH [None]
